FAERS Safety Report 17925517 (Version 1)
Quarter: 2020Q2

REPORT INFORMATION
  Report Type: Report from Study
  Country: SE (occurrence: SE)
  Receive Date: 20200622
  Receipt Date: 20200622
  Transmission Date: 20200714
  Serious: Yes (Hospitalization, Other)
  Sender: FDA-Public Use
  Company Number: SE-CELGENEUS-SWE-20170509204

PATIENT
  Age: 82 Year
  Sex: Female
  Weight: 52 kg

DRUGS (15)
  1. TIMOLOL. [Concomitant]
     Active Substance: TIMOLOL
     Indication: GLAUCOMA
     Route: 065
     Dates: start: 20110516
  2. MORPHINE [Concomitant]
     Active Substance: MORPHINE
     Dosage: 10 MILLIGRAM
     Route: 065
     Dates: start: 20160106, end: 20160120
  3. REVLIMID [Suspect]
     Active Substance: LENALIDOMIDE
     Indication: MYELODYSPLASTIC SYNDROME
     Dosage: 10 MILLIGRAM
     Route: 048
     Dates: start: 20170330, end: 20170411
  4. REVLIMID [Suspect]
     Active Substance: LENALIDOMIDE
     Dosage: 10 MILLIGRAM
     Route: 048
     Dates: start: 20141006, end: 20170329
  5. ALENDRONACID [Concomitant]
     Indication: OSTEOPOROSIS
     Dosage: 70 MILLIGRAM
     Route: 065
     Dates: start: 20170622
  6. MOVICOL [Concomitant]
     Active Substance: POLYETHYLENE GLYCOL 3350\POTASSIUM CHLORIDE\SODIUM BICARBONATE\SODIUM CHLORIDE
     Indication: CONSTIPATION PROPHYLAXIS
     Route: 065
     Dates: start: 20160106
  7. REVLIMID [Suspect]
     Active Substance: LENALIDOMIDE
     Dosage: 10 MILLIGRAM
     Route: 048
     Dates: start: 20170330, end: 20170411
  8. AMLODIPINE [Concomitant]
     Active Substance: AMLODIPINE BESYLATE
     Indication: HYPERTENSION
     Route: 065
     Dates: start: 201212
  9. AMILORID [Concomitant]
     Indication: HYPERTENSION
     Route: 065
     Dates: start: 201510
  10. REVLIMID [Suspect]
     Active Substance: LENALIDOMIDE
     Dosage: 10 MILLIGRAM
     Route: 048
     Dates: start: 20170420, end: 20180907
  11. PARACETAMOL [Concomitant]
     Active Substance: ACETAMINOPHEN
     Indication: PAIN
     Route: 065
     Dates: start: 201501
  12. BEHEPAN [Concomitant]
     Indication: PROPHYLAXIS
     Route: 065
     Dates: start: 201510
  13. MORPHINE [Concomitant]
     Active Substance: MORPHINE
     Indication: FRACTURE
     Route: 065
     Dates: start: 20150106
  14. CYANOCOBALAMIN. [Concomitant]
     Active Substance: CYANOCOBALAMIN
     Indication: PROPHYLAXIS
     Dosage: 1 MILLIGRAM
     Route: 065
     Dates: start: 20151012
  15. PARACETAMOL [Concomitant]
     Active Substance: ACETAMINOPHEN
     Indication: FRACTURE
     Route: 065
     Dates: start: 20160106, end: 20170421

REACTIONS (2)
  - Splenic infarction [Recovered/Resolved]
  - Splenic vein thrombosis [Recovered/Resolved]

NARRATIVE: CASE EVENT DATE: 20170410
